FAERS Safety Report 16888723 (Version 2)
Quarter: 2019Q4

REPORT INFORMATION
  Report Type: Report from Study
  Country: IL (occurrence: IL)
  Receive Date: 20191007
  Receipt Date: 20191016
  Transmission Date: 20200122
  Serious: Yes (Other)
  Sender: FDA-Public Use
  Company Number: IL-ROCHE-2420476

PATIENT
  Age: 68 Year
  Sex: Female
  Weight: 112 kg

DRUGS (17)
  1. GLUCOMIN [Concomitant]
     Active Substance: METFORMIN HYDROCHLORIDE
     Indication: DIABETES MELLITUS
     Route: 065
     Dates: start: 2007
  2. ROXITHROMYCIN [Concomitant]
     Active Substance: ROXITHROMYCIN
     Indication: HYPOTHYROIDISM
     Route: 048
     Dates: start: 20180525
  3. CLEXANE [Concomitant]
     Active Substance: ENOXAPARIN SODIUM
     Route: 058
     Dates: start: 20181122
  4. ZALDIAR [Concomitant]
     Active Substance: ACETAMINOPHEN\TRAMADOL HYDROCHLORIDE
     Route: 065
  5. COBIMETINIB. [Suspect]
     Active Substance: COBIMETINIB
     Indication: METASTATIC MALIGNANT MELANOMA
     Dosage: MOST RECENT DOSE OF COBIMETINIB PRIOR TO SAE ON 23/MAY/2018?60 MG (THREE, 20 MG TABLETS) PO QD ON DA
     Route: 048
     Dates: start: 20170425
  6. VEMURAFENIB. [Suspect]
     Active Substance: VEMURAFENIB
     Indication: METASTATIC MALIGNANT MELANOMA
     Dosage: TOTAL NUMBER OF TABLETS OF LAST VEMURAFENIB ADMINISTERED PRIOR TO SAE ONSET:111 TABLETS?DATE OF MOST
     Route: 048
     Dates: start: 20170425
  7. OCSAAR [LOSARTAN POTASSIUM] [Concomitant]
     Indication: HYPERTENSION
     Route: 065
     Dates: start: 20180408
  8. FEXOFENADINE [Concomitant]
     Active Substance: FEXOFENADINE HYDROCHLORIDE
     Indication: RASH
     Route: 061
     Dates: start: 20170418
  9. LORIVAN [Concomitant]
     Active Substance: LORAZEPAM
     Indication: INSOMNIA
     Route: 042
     Dates: start: 20181024
  10. CANNABIS SATIVA OIL [Concomitant]
     Active Substance: CANNABIS SATIVA SUBSP. INDICA TOP
     Indication: PAIN
     Route: 048
     Dates: start: 20160610
  11. AFLUMYCIN [Concomitant]
     Indication: ABDOMINAL INJURY
     Route: 065
     Dates: start: 20170912
  12. BLINDED ATEZOLIZUMAB [Suspect]
     Active Substance: ATEZOLIZUMAB
     Indication: METASTATIC MALIGNANT MELANOMA
     Dosage: DATE OF MOST RECENT DOSE OF BLINDED ATEZOLIZUMAB PRIOR TO SAE ONSET:07/AUG/2019
     Route: 042
     Dates: start: 20170523
  13. MICROPIRIN [Concomitant]
     Active Substance: ASPIRIN
     Route: 048
  14. CARDILOC [Concomitant]
     Active Substance: BISOPROLOL FUMARATE
     Indication: HYPERTENSION
     Route: 048
     Dates: start: 20170624
  15. ELIQUIS [Concomitant]
     Active Substance: APIXABAN
     Indication: ATRIAL FIBRILLATION
     Route: 048
     Dates: start: 20181202
  16. OCSAAR PLUS [Concomitant]
     Active Substance: HYDROCHLOROTHIAZIDE\LOSARTAN POTASSIUM
     Indication: HYPERTENSION
     Route: 048
     Dates: start: 20180408
  17. LOSEC [Concomitant]
     Active Substance: OMEPRAZOLE
     Indication: ABDOMINAL PAIN UPPER
     Route: 048
     Dates: start: 20180305

REACTIONS (1)
  - Knee arthroplasty [Not Recovered/Not Resolved]

NARRATIVE: CASE EVENT DATE: 20190905
